FAERS Safety Report 12645442 (Version 4)
Quarter: 2017Q1

REPORT INFORMATION
  Report Type: Report from Study
  Country: JP (occurrence: JP)
  Receive Date: 20160811
  Receipt Date: 20170322
  Transmission Date: 20170428
  Serious: Yes (Hospitalization)
  Sender: FDA-Public Use
  Company Number: JP-TEVA-684047ISR

PATIENT
  Age: 76 Year
  Sex: Female
  Weight: 51.2 kg

DRUGS (15)
  1. SHAKUYAKUKANZOTO [Concomitant]
     Active Substance: HERBALS
     Dates: start: 20121016, end: 20160804
  2. MELOXICAM. [Concomitant]
     Active Substance: MELOXICAM
     Dates: start: 20151112, end: 20160804
  3. LANSOPRAZOLE. [Concomitant]
     Active Substance: LANSOPRAZOLE
     Dosage: ONGOING
     Dates: start: 20151112
  4. LIXIANA [Concomitant]
     Active Substance: EDOXABAN TOSILATE MONOHYDRATE
     Indication: DEEP VEIN THROMBOSIS
     Dosage: 30 MILLIGRAM DAILY;
     Route: 048
     Dates: start: 20160630, end: 20160804
  5. LIMAPROST ALFADEX [Concomitant]
     Active Substance: LIMAPROST
     Dates: start: 20141120, end: 20160804
  6. ARTZ [Concomitant]
     Active Substance: HYALURONATE SODIUM
     Dates: start: 20150917, end: 20160804
  7. LAMISIL [Concomitant]
     Active Substance: TERBINAFINE HYDROCHLORIDE
     Dates: start: 20150827, end: 20160804
  8. SUMILU [Concomitant]
     Active Substance: FELBINAC
     Dates: start: 20160421, end: 20160804
  9. RASAGILINE MESILATE [Suspect]
     Active Substance: RASAGILINE MESYLATE
     Indication: PARKINSON^S DISEASE
     Dosage: 1 MILLIGRAM DAILY;
     Route: 048
     Dates: start: 20160205, end: 20160803
  10. METHYCOBAL [Concomitant]
     Active Substance: METHYLCOBALAMIN
     Dates: start: 20141120, end: 20160804
  11. SIMVASTATIN. [Concomitant]
     Active Substance: SIMVASTATIN
     Dates: start: 20140415, end: 20160804
  12. SALICYLIC ACID. [Concomitant]
     Active Substance: SALICYLIC ACID
     Dates: start: 20150827, end: 20160804
  13. KETOPROFEN. [Concomitant]
     Active Substance: KETOPROFEN
     Dates: start: 20141120, end: 20160804
  14. NICHIPHARGEN [Concomitant]
     Dates: start: 20081210, end: 20160804
  15. HIRUDOID [Concomitant]
     Active Substance: GLYCOSAMINOGLYCANS
     Dates: start: 20150827, end: 20160804

REACTIONS (1)
  - Microscopic polyangiitis [Unknown]

NARRATIVE: CASE EVENT DATE: 20160803
